FAERS Safety Report 5347723-8 (Version None)
Quarter: 2007Q2

REPORT INFORMATION
  Report Type: 
  Country: None (occurrence: None)
  Receive Date: 20070606
  Receipt Date: 20070528
  Transmission Date: 20071010
  Serious: Yes (Hospitalization, Other)
  Sender: FDA-Public Use
  Company Number: JP-JNJFOC-20070403147

PATIENT
  Sex: Female
  Weight: 46 kg

DRUGS (8)
  1. REMICADE [Suspect]
     Route: 042
  2. REMICADE [Suspect]
     Route: 042
  3. REMICADE [Suspect]
     Indication: RHEUMATOID ARTHRITIS
     Dosage: INITIAL DOSE
     Route: 042
  4. STEROIDS [Concomitant]
     Indication: RHEUMATOID ARTHRITIS
     Route: 065
  5. GOLD PREPARATIONS [Concomitant]
     Indication: RHEUMATOID ARTHRITIS
     Route: 065
  6. DMARDS [Concomitant]
     Indication: RHEUMATOID ARTHRITIS
     Route: 065
  7. NSAIDS [Concomitant]
     Route: 065
  8. PREDNISOLONE [Concomitant]

REACTIONS (4)
  - MUSCLE ENZYME INCREASED [None]
  - MYALGIA [None]
  - THROMBOPHLEBITIS [None]
  - TUBERCULOUS PLEURISY [None]
